FAERS Safety Report 4566127-9 (Version None)
Quarter: 2005Q1

REPORT INFORMATION
  Report Type: 
  Country: None (occurrence: None)
  Receive Date: 20050126
  Receipt Date: 20050126
  Transmission Date: 20050727
  Serious: No
  Sender: FDA-Public Use
  Company Number: None

PATIENT
  Age: 11 Year
  Sex: Male

DRUGS (1)
  1. CATAPRES [Suspect]
     Indication: ATTENTION DEFICIT/HYPERACTIVITY DISORDER
     Dosage: 0.1

REACTIONS (3)
  - DRUG INEFFECTIVE [None]
  - PHARMACEUTICAL PRODUCT COMPLAINT [None]
  - SEDATION [None]
